FAERS Safety Report 9753330 (Version 2)
Quarter: 2013Q4

REPORT INFORMATION
  Report Type: Report from Study
  Country: US (occurrence: US)
  Receive Date: 20131213
  Receipt Date: 20131213
  Transmission Date: 20140711
  Serious: Yes (Other)
  Sender: FDA-Public Use
  Company Number: US-ABBVIE-12P-163-1026838-00

PATIENT
  Age: 57 Year
  Sex: Female

DRUGS (24)
  1. HUMIRA [Suspect]
     Indication: RHEUMATOID ARTHRITIS
     Route: 058
     Dates: start: 20121201, end: 20121201
  2. HUMIRA [Suspect]
     Dates: start: 20121215, end: 20121215
  3. PLAQUENIL [Concomitant]
     Indication: RHEUMATOID ARTHRITIS
  4. MELOXICAM [Concomitant]
     Indication: RHEUMATOID ARTHRITIS
  5. MELOXICAM [Concomitant]
     Indication: FIBROMYALGIA
  6. MELOXICAM [Concomitant]
     Indication: ARTHRITIS
  7. PREDNISONE [Concomitant]
     Indication: RHEUMATOID ARTHRITIS
     Route: 048
  8. PREDNISONE [Concomitant]
     Indication: FIBROMYALGIA
  9. PREDNISONE [Concomitant]
     Indication: ARTHRITIS
  10. LEFLUNOMIDE [Concomitant]
     Indication: RHEUMATOID ARTHRITIS
     Dates: end: 20121227
  11. LEFLUNOMIDE [Concomitant]
     Indication: FIBROMYALGIA
     Dates: end: 201303
  12. LEFLUNOMIDE [Concomitant]
     Indication: ARTHRITIS
  13. PROPRANOLOL [Concomitant]
     Indication: HYPERTENSION
  14. HYDROCHLOROTHIAZIDE W/ LISINOPRIL DIHYDRATE [Concomitant]
     Indication: HYPERTENSION
     Dosage: 12.5MG/0.5 MG
  15. LEVOTHYROXINE [Concomitant]
     Indication: HYPOTHYROIDISM
     Route: 048
  16. POTASSIUM [Concomitant]
     Indication: DEPRESSION
  17. FOLIC ACID [Concomitant]
     Indication: DEPRESSION
  18. PAXIL [Concomitant]
     Indication: DEPRESSION
  19. ASA [Concomitant]
     Indication: PAIN
     Route: 048
  20. VITAMIN D [Concomitant]
     Indication: PAIN
  21. CALCIUM [Concomitant]
     Indication: PAIN
  22. TYLENOL [Concomitant]
     Indication: PAIN
     Route: 048
  23. ALBUTEROL [Concomitant]
     Indication: CHRONIC OBSTRUCTIVE PULMONARY DISEASE
  24. HYDROXYCHLOROQUINE [Concomitant]

REACTIONS (16)
  - Osteonecrosis [Recovering/Resolving]
  - Joint injury [Recovering/Resolving]
  - Feeling cold [Recovering/Resolving]
  - Drug ineffective [Not Recovered/Not Resolved]
  - Night sweats [Recovering/Resolving]
  - Joint stiffness [Recovering/Resolving]
  - Arthritis [Recovering/Resolving]
  - Diarrhoea [Unknown]
  - Headache [Unknown]
  - Contusion [Unknown]
  - Cellulitis [Recovered/Resolved]
  - Gout [Not Recovered/Not Resolved]
  - Rotator cuff syndrome [Unknown]
  - Rheumatoid arthritis [Not Recovered/Not Resolved]
  - Pain [Not Recovered/Not Resolved]
  - Joint range of motion decreased [Not Recovered/Not Resolved]
